FAERS Safety Report 13442803 (Version 3)
Quarter: 2017Q3

REPORT INFORMATION
  Report Type: Spontaneous
  Country: US (occurrence: US)
  Receive Date: 20170414
  Receipt Date: 20170801
  Transmission Date: 20171127
  Serious: Yes (Life-Threatening, Disabling, Other)
  Sender: FDA-Public Use
  Company Number: US-PFIZER INC-2017154802

PATIENT
  Age: 74 Year
  Sex: Female
  Weight: 73 kg

DRUGS (14)
  1. KLOR-CON [Concomitant]
     Active Substance: POTASSIUM CHLORIDE
     Indication: BLOOD POTASSIUM DECREASED
     Dosage: 2 DF, 2X/DAY (M20, EXTENDED RELEASE 2 TABLETS)
     Route: 048
  2. BABY ASPIRIN [Concomitant]
     Active Substance: ASPIRIN
     Indication: PROPHYLAXIS
     Dosage: UNK
  3. ATORVASTATIN CALCIUM. [Suspect]
     Active Substance: ATORVASTATIN CALCIUM
     Indication: BLOOD CHOLESTEROL
     Dosage: 20 MG, 1X/DAY
     Route: 048
     Dates: start: 201608, end: 201703
  4. PROTONEX [Concomitant]
     Indication: GASTROOESOPHAGEAL REFLUX DISEASE
     Dosage: 40 MG, 1X/DAY
     Route: 048
  5. CITRACAL + D3 [Concomitant]
     Dosage: UNK, 1X/DAY
     Route: 048
     Dates: start: 2015
  6. LOSARTAN. [Concomitant]
     Active Substance: LOSARTAN
     Indication: BLOOD PRESSURE ABNORMAL
     Dosage: 25 MG, 1X/DAY
     Route: 048
  7. LIPITOR [Suspect]
     Active Substance: ATORVASTATIN CALCIUM
     Dosage: UNK
     Dates: start: 201605, end: 201704
  8. PERCOCET [Concomitant]
     Active Substance: ACETAMINOPHEN\OXYCODONE HYDROCHLORIDE
     Indication: PAIN
     Dosage: UNK, 3X/DAY
     Route: 048
  9. VITAMIN D3 [Concomitant]
     Active Substance: CHOLECALCIFEROL
     Indication: VITAMIN D DECREASED
     Dosage: 2000 IU, 1X/DAY
     Route: 048
  10. VITAMIN B12 [Concomitant]
     Active Substance: CYANOCOBALAMIN
     Indication: VITAMIN B COMPLEX DEFICIENCY
     Dosage: 2500 UG, 1X/DAY
     Route: 060
  11. ALENDRONATE [Concomitant]
     Active Substance: ALENDRONATE SODIUM
     Indication: BONE LOSS
     Dosage: 70 MG, WEEKLY (ONCE A WEEK)
     Route: 048
  12. PERCOCET [Concomitant]
     Active Substance: ACETAMINOPHEN\OXYCODONE HYDROCHLORIDE
     Dosage: UNK (NOW ARE UP TO 5 PER DAY)
  13. VERAPAMIL [Concomitant]
     Active Substance: VERAPAMIL HYDROCHLORIDE
     Indication: BLOOD PRESSURE ABNORMAL
     Dosage: 240 MG, 1X/DAY
     Route: 048
  14. HYDROCHLORZIDE [Concomitant]
     Active Substance: HYDROCHLOROTHIAZIDE
     Indication: BLOOD PRESSURE ABNORMAL
     Dosage: 12.5 MG, 1X/DAY (1/2 TABLET)
     Route: 048

REACTIONS (28)
  - Pain in extremity [Unknown]
  - Blood pressure fluctuation [Not Recovered/Not Resolved]
  - Cystitis [Unknown]
  - Blood potassium decreased [Unknown]
  - Hypoaesthesia [Unknown]
  - Blood glucose increased [Unknown]
  - Musculoskeletal stiffness [Not Recovered/Not Resolved]
  - Hypertension [Recovering/Resolving]
  - Urinary tract infection [Recovering/Resolving]
  - Myalgia [Not Recovered/Not Resolved]
  - Back pain [Unknown]
  - Condition aggravated [Unknown]
  - Purpura [Recovered/Resolved]
  - Anaemia [Unknown]
  - Adrenal insufficiency [Unknown]
  - Weight increased [Unknown]
  - Muscle spasms [Unknown]
  - Balance disorder [Unknown]
  - Arthralgia [Recovering/Resolving]
  - Insomnia [Unknown]
  - Neuropathy peripheral [Unknown]
  - Vision blurred [Unknown]
  - Pain [Not Recovered/Not Resolved]
  - Dysuria [Unknown]
  - Asthenia [Unknown]
  - Gait disturbance [Unknown]
  - Palpitations [Unknown]
  - Glucose tolerance impaired [Unknown]

NARRATIVE: CASE EVENT DATE: 2016
